FAERS Safety Report 5874849-2 (Version None)
Quarter: 2008Q3

REPORT INFORMATION
  Report Type: 
  Country: None (occurrence: None)
  Receive Date: 20080904
  Receipt Date: 20080822
  Transmission Date: 20090109
  Serious: Yes (Other)
  Sender: FDA-Public Use
  Company Number: 2008-03083

PATIENT
  Age: 65 Year
  Sex: Male
  Weight: 63 kg

DRUGS (1)
  1. VELCADE [Suspect]
     Indication: MULTIPLE MYELOMA
     Dosage: INTRAVENOUS
     Route: 042
     Dates: start: 20080729, end: 20080808

REACTIONS (6)
  - BLOOD LACTATE DEHYDROGENASE INCREASED [None]
  - CONDITION AGGRAVATED [None]
  - MULTIPLE MYELOMA [None]
  - PLEURAL EFFUSION [None]
  - RENAL FAILURE [None]
  - TUMOUR LYSIS SYNDROME [None]
